FAERS Safety Report 7094508-0 (Version None)
Quarter: 2010Q4

REPORT INFORMATION
  Report Type: 
  Country: None (occurrence: None)
  Receive Date: 20101110
  Receipt Date: 20101104
  Transmission Date: 20110411
  Serious: Yes (Death)
  Sender: FDA-Public Use
  Company Number: PHHY2010NL73910

PATIENT
  Sex: Female
  Weight: 54 kg

DRUGS (5)
  1. ALISKIREN ALI+TAB [Suspect]
  2. PERINDOPRIL [Concomitant]
     Indication: HYPERTENSION
     Dosage: 8 MG
     Dates: start: 20080723
  3. SOTALOL [Concomitant]
     Indication: ATRIAL FIBRILLATION
     Dosage: 80 MG, BID
     Dates: start: 20090808
  4. ASPIRIN [Concomitant]
     Indication: ATRIAL FIBRILLATION
     Dosage: 80 MG
     Dates: start: 20090818
  5. HYDROCHLOROTHIAZIDE [Concomitant]
     Dosage: 25 MG

REACTIONS (1)
  - CARDIAC ARREST [None]
